FAERS Safety Report 7071614-8 (Version None)
Quarter: 2010Q4

REPORT INFORMATION
  Report Type: 
  Country: None (occurrence: None)
  Receive Date: 20101029
  Receipt Date: 20090928
  Transmission Date: 20110411
  Serious: No
  Sender: FDA-Public Use
  Company Number: A0809325A

PATIENT
  Age: 41 Year
  Sex: Female

DRUGS (2)
  1. ADVAIR DISKUS 100/50 [Suspect]
     Indication: INFECTION PROPHYLAXIS
     Dosage: 1PUFF PER DAY
     Route: 055
     Dates: start: 20090925
  2. SEROQUEL [Concomitant]

REACTIONS (1)
  - FEELING JITTERY [None]
